FAERS Safety Report 9258529 (Version 1)
Quarter: 2013Q1

REPORT INFORMATION
  Report Type: Spontaneous
  Country: US (occurrence: None)
  Receive Date: 20121212
  Receipt Date: 20121212
  Transmission Date: 20140127
  Serious: No
  Sender: FDA-Public Use
  Company Number: 1210USA012088

PATIENT
  Age: 52 Year
  Sex: Female

DRUGS (3)
  1. VICTRELIS [Suspect]
     Indication: HEPATITIS C
     Route: 048
     Dates: start: 201205
  2. PEGINTRON (PEGINTERFERON ALFA-2B) POWDER FOR INJECTION [Suspect]
     Dates: start: 201205
  3. REBETOL [Suspect]
     Route: 048
     Dates: start: 201205

REACTIONS (7)
  - Malaise [None]
  - Influenza like illness [None]
  - Fatigue [None]
  - Alopecia [None]
  - Neuropathy peripheral [None]
  - Rash [None]
  - Skin disorder [None]
